FAERS Safety Report 17378102 (Version 1)
Quarter: 2020Q1

REPORT INFORMATION
  Report Type: Spontaneous
  Country: GB (occurrence: GB)
  Receive Date: 20200206
  Receipt Date: 20200206
  Transmission Date: 20200409
  Serious: Yes (Hospitalization)
  Sender: FDA-Public Use
  Company Number: GB-ELI_LILLY_AND_COMPANY-GB202001012624

PATIENT
  Age: 70 Year
  Sex: Female

DRUGS (8)
  1. DULOXETINE HYDROCHLORIDE. [Suspect]
     Active Substance: DULOXETINE HYDROCHLORIDE
     Dosage: 60 MG, DAILY
     Route: 048
     Dates: start: 20191026
  2. ARIPIPRAZOLE. [Concomitant]
     Active Substance: ARIPIPRAZOLE
     Indication: DEPRESSION
     Route: 048
     Dates: start: 20191010
  3. ATORVASTATIN [Concomitant]
     Active Substance: ATORVASTATIN
     Indication: PRODUCT USED FOR UNKNOWN INDICATION
     Dosage: 20 MG, DAILY AT NIGHT
     Route: 048
  4. LORAZEPAM. [Concomitant]
     Active Substance: LORAZEPAM
     Indication: PRODUCT USED FOR UNKNOWN INDICATION
     Dosage: FOUR HOURLY, MAXIMUM 1MG
     Route: 048
  5. DULOXETINE HYDROCHLORIDE. [Suspect]
     Active Substance: DULOXETINE HYDROCHLORIDE
     Dosage: 60MG OD 30/9/19 TILL 6/10/19 THEN 90MG OD TILL 25/10/19 WHEN THIS WAS REDUCED TO 60MG OD
     Route: 048
     Dates: start: 20191007, end: 20191025
  6. DULOXETINE HYDROCHLORIDE. [Suspect]
     Active Substance: DULOXETINE HYDROCHLORIDE
     Indication: DEPRESSION
     Dosage: 60MG OD 30/9/19 TILL 6/10/19 THEN 90MG OD TILL 25/10/19 WHEN THIS WAS REDUCED TO 60MG OD
     Route: 048
     Dates: start: 20190930, end: 20191006
  7. TRIMETHOPRIM. [Concomitant]
     Active Substance: TRIMETHOPRIM
     Indication: URINARY TRACT INFECTION
  8. MIRTAZAPINE. [Suspect]
     Active Substance: MIRTAZAPINE
     Indication: DEPRESSION
     Dosage: 45 MG, DAILY AT NIGHT
     Route: 048
     Dates: start: 201811

REACTIONS (10)
  - Urinary retention [Recovering/Resolving]
  - Cold sweat [Unknown]
  - Musculoskeletal stiffness [Unknown]
  - Tachycardia [Unknown]
  - Disorientation [Unknown]
  - Hyperhidrosis [Unknown]
  - Serotonin syndrome [Unknown]
  - Confusional state [Unknown]
  - Persecutory delusion [Unknown]
  - Anxiety [Unknown]

NARRATIVE: CASE EVENT DATE: 20191028
